FAERS Safety Report 17653842 (Version 1)
Quarter: 2020Q2

REPORT INFORMATION
  Report Type: Spontaneous
  Country: CH (occurrence: CH)
  Receive Date: 20200409
  Receipt Date: 20200409
  Transmission Date: 20200713
  Serious: Yes (Death, Hospitalization)
  Sender: FDA-Public Use
  Company Number: CH-BAXTER-2020BAX007284

PATIENT
  Age: 64 Year
  Sex: Male

DRUGS (36)
  1. VIDAZA [Suspect]
     Active Substance: AZACITIDINE
     Indication: GRAFT VERSUS HOST DISEASE
     Dosage: 1 CYCLE
     Route: 065
     Dates: start: 20190112, end: 20190116
  2. GRANULOCYTE MACROPHAGE COLONY STIM FACTOR [Suspect]
     Active Substance: GRANULOCYTE-MACROPHAGE COLONY-STIMULATING FACTOR
     Indication: PROPHYLAXIS AGAINST GRAFT VERSUS HOST DISEASE
     Dosage: D +5
     Route: 065
     Dates: start: 20190912, end: 201909
  3. XYZAL [Concomitant]
     Active Substance: LEVOCETIRIZINE DIHYDROCHLORIDE
     Indication: PRODUCT USED FOR UNKNOWN INDICATION
     Dosage: SHORT TIME THERAPY AMONGST ALLERGIC REACTION. NO FURTHER INFORMATION TO DETERMINE
     Route: 065
     Dates: start: 201912, end: 20191222
  4. NOPIL [Concomitant]
     Active Substance: SULFAMETHOXAZOLE\TRIMETHOPRIM
     Indication: PRODUCT USED FOR UNKNOWN INDICATION
     Dosage: 800/160 MG 1 0 0 MONDAY, WEDNESDAY, FRIDAY
     Route: 065
  5. ESOMEP [Concomitant]
     Active Substance: ESOMEPRAZOLE
     Indication: PRODUCT USED FOR UNKNOWN INDICATION
     Dosage: 1 1 0
     Route: 065
  6. IDARUBICIN [Suspect]
     Active Substance: IDARUBICIN
     Indication: ACUTE MYELOID LEUKAEMIA
     Route: 065
     Dates: start: 20190731
  7. SANDIMMUN [Concomitant]
     Active Substance: CYCLOSPORINE
     Indication: PRODUCT USED FOR UNKNOWN INDICATION
     Route: 065
     Dates: end: 20191212
  8. PREDNISOLONE ACETATE. [Concomitant]
     Active Substance: PREDNISOLONE ACETATE
     Indication: PRODUCT USED FOR UNKNOWN INDICATION
     Dosage: SHORT TIME THERAPY AMONGST ALLERGIC REACTION. NO FURTHER INFORMATION TO DETERMINE
     Route: 065
     Dates: start: 201912, end: 20191222
  9. ENDOXAN 1 G. TROCKENSUBSTANZ ZUR INTRAVEN?SEN INFUSION [Suspect]
     Active Substance: CYCLOPHOSPHAMIDE
     Indication: PROPHYLAXIS AGAINST GRAFT VERSUS HOST DISEASE
     Dosage: D +3 AND +4
     Route: 065
     Dates: start: 20190912, end: 201909
  10. MYCOPHENOLATE MOFETIL. [Suspect]
     Active Substance: MYCOPHENOLATE MOFETIL
     Indication: PROPHYLAXIS AGAINST GRAFT VERSUS HOST DISEASE
     Route: 065
     Dates: start: 20190912, end: 201909
  11. CYTOSAR [Suspect]
     Active Substance: CYTARABINE
     Route: 065
     Dates: start: 20190731
  12. SOLU-MEDROL [Suspect]
     Active Substance: METHYLPREDNISOLONE SODIUM SUCCINATE
     Route: 042
     Dates: start: 20191003, end: 20191003
  13. VALTREX [Concomitant]
     Active Substance: VALACYCLOVIR HYDROCHLORIDE
     Indication: PRODUCT USED FOR UNKNOWN INDICATION
     Dosage: 1 0 1
     Route: 065
  14. COVERSUM N [Concomitant]
     Active Substance: PERINDOPRIL
     Indication: PRODUCT USED FOR UNKNOWN INDICATION
     Dosage: TBL. 1/2 0 1/2
     Route: 065
  15. BUSCOPAN [Concomitant]
     Active Substance: BUTYLSCOPOLAMINE BROMIDE
     Indication: PRODUCT USED FOR UNKNOWN INDICATION
     Dosage: AS NECESSARY, DRAGEES. 1-2 TABLETS ADDITIONALLY ON DEMAND
     Route: 065
  16. VIDAZA [Suspect]
     Active Substance: AZACITIDINE
     Indication: ACUTE MYELOID LEUKAEMIA
     Route: 065
     Dates: start: 20191209, end: 20191213
  17. FLUDARABINE [Suspect]
     Active Substance: FLUDARABINE PHOSPHATE
     Indication: BONE MARROW CONDITIONING REGIMEN
     Route: 065
     Dates: start: 20190912
  18. LITAK [Suspect]
     Active Substance: CLADRIBINE
     Indication: ACUTE MYELOID LEUKAEMIA
     Route: 065
     Dates: start: 20190112, end: 20190116
  19. SOLU-MEDROL [Suspect]
     Active Substance: METHYLPREDNISOLONE SODIUM SUCCINATE
     Route: 042
     Dates: start: 20191004, end: 20191004
  20. MAGNESIOCARD [Concomitant]
     Active Substance: MAGNESIUM ASPARTATE HYDROCHLORIDE
     Indication: PRODUCT USED FOR UNKNOWN INDICATION
     Dosage: 1 1 1
     Route: 065
  21. NOXAFIL [Suspect]
     Active Substance: POSACONAZOLE
     Indication: PRODUCT USED FOR UNKNOWN INDICATION
     Dosage: TBL.3 0 0
     Route: 065
  22. THIOTEPA. [Suspect]
     Active Substance: THIOTEPA
     Indication: BONE MARROW CONDITIONING REGIMEN
     Route: 065
     Dates: start: 20190912, end: 201909
  23. BUSULFANO [Suspect]
     Active Substance: BUSULFAN
     Indication: BONE MARROW CONDITIONING REGIMEN
     Route: 065
     Dates: start: 20190912, end: 201909
  24. CYTOSAR [Suspect]
     Active Substance: CYTARABINE
     Dosage: 2ND CYCLE
     Route: 065
     Dates: start: 20190523, end: 20190528
  25. SOLU-MEDROL [Suspect]
     Active Substance: METHYLPREDNISOLONE SODIUM SUCCINATE
     Route: 042
     Dates: start: 20191005, end: 20191006
  26. AMLODIPIN [Concomitant]
     Active Substance: AMLODIPINE BESYLATE
     Indication: PRODUCT USED FOR UNKNOWN INDICATION
     Dosage: 0 0 1
     Route: 065
     Dates: start: 20191209
  27. PRADIF [Concomitant]
     Active Substance: TAMSULOSIN HYDROCHLORIDE
     Indication: PRODUCT USED FOR UNKNOWN INDICATION
     Dosage: 0 0 1
     Route: 065
  28. CERUBIDINE [Suspect]
     Active Substance: DAUNORUBICIN HYDROCHLORIDE
     Indication: ACUTE MYELOID LEUKAEMIA
     Dosage: 1ST CYCLE
     Route: 065
     Dates: start: 20190227, end: 20190305
  29. SOLU-MEDROL [Suspect]
     Active Substance: METHYLPREDNISOLONE SODIUM SUCCINATE
     Indication: PRODUCT USED FOR UNKNOWN INDICATION
     Route: 042
     Dates: start: 20191002, end: 20191002
  30. CYTARABINE. [Suspect]
     Active Substance: CYTARABINE
     Indication: ACUTE MYELOID LEUKAEMIA
     Route: 065
     Dates: start: 20190731
  31. CONCOR [Concomitant]
     Active Substance: BISOPROLOL FUMARATE
     Indication: PRODUCT USED FOR UNKNOWN INDICATION
     Dosage: TBL 1 0 0
     Route: 065
  32. CERUBIDINE [Suspect]
     Active Substance: DAUNORUBICIN HYDROCHLORIDE
     Dosage: 2ND CYCLE
     Route: 065
     Dates: start: 20190523, end: 20190528
  33. VITAMIN D3 [Concomitant]
     Active Substance: CHOLECALCIFEROL
     Indication: PRODUCT USED FOR UNKNOWN INDICATION
     Dosage: 0 0 DI
     Route: 065
  34. CYCLOSPORIN A [Suspect]
     Active Substance: CYCLOSPORINE
     Indication: PROPHYLAXIS AGAINST GRAFT VERSUS HOST DISEASE
     Route: 065
     Dates: start: 20190912, end: 201909
  35. CYTOSAR [Suspect]
     Active Substance: CYTARABINE
     Indication: ACUTE MYELOID LEUKAEMIA
     Dosage: 1ST CYCLE
     Route: 065
     Dates: start: 20190227, end: 20190305
  36. CLADRIBINE. [Suspect]
     Active Substance: CLADRIBINE
     Indication: ACUTE MYELOID LEUKAEMIA
     Route: 065
     Dates: start: 20190731

REACTIONS (2)
  - Pulmonary alveolar haemorrhage [Recovering/Resolving]
  - Diffuse alveolar damage [Fatal]

NARRATIVE: CASE EVENT DATE: 20191002
